FAERS Safety Report 7132458-1 (Version None)
Quarter: 2010Q4

REPORT INFORMATION
  Report Type: 
  Country: None (occurrence: None)
  Receive Date: 20101130
  Receipt Date: 20101130
  Transmission Date: 20110411
  Serious: Yes (Other)
  Sender: FDA-Public Use
  Company Number: None

PATIENT
  Age: 55 Year
  Sex: Male
  Weight: 69.4003 kg

DRUGS (2)
  1. TRAZODONE HCL [Suspect]
     Indication: DEPRESSION
     Dosage: 1 TAB. AT BEDTIME
     Dates: start: 20100925, end: 20100930
  2. TRAZODONE HCL [Suspect]
     Indication: SLEEP DISORDER THERAPY
     Dosage: 1 TAB. AT BEDTIME
     Dates: start: 20100925, end: 20100930

REACTIONS (2)
  - PRURITUS [None]
  - URTICARIA [None]
